FAERS Safety Report 4410640-1 (Version None)
Quarter: 2004Q3

REPORT INFORMATION
  Report Type: 
  Country: None (occurrence: None)
  Receive Date: 20040726
  Receipt Date: 20040714
  Transmission Date: 20050211
  Serious: Yes (Hospitalization)
  Sender: FDA-Public Use
  Company Number: NSADSS2002046507

PATIENT
  Age: 17 Year
  Sex: Female
  Weight: 58.9676 kg

DRUGS (9)
  1. REMICADE [Suspect]
     Indication: COLITIS ULCERATIVE
     Dosage: 29 ML, 1 IN 1 AS NECESSARY, INTRAVENOUS DRIP
     Route: 041
     Dates: start: 20020901, end: 20020901
  2. REMICADE [Suspect]
     Indication: COLITIS ULCERATIVE
     Dosage: 29 ML, 1 IN 1 AS NECESSARY, INTRAVENOUS DRIP
     Route: 041
     Dates: start: 20021001, end: 20021001
  3. IMURAN [Concomitant]
  4. PREDNISONE [Concomitant]
  5. PENTASA [Concomitant]
  6. MERCAPTOPURINE [Concomitant]
  7. ANUSOL (ANUSOL) [Concomitant]
  8. BENADRYL [Concomitant]
  9. TYLENOL [Concomitant]

REACTIONS (5)
  - DRUG EXPOSURE DURING PREGNANCY [None]
  - HAEMATOCRIT DECREASED [None]
  - NEPHROLITHIASIS [None]
  - PREGNANCY [None]
  - WHITE BLOOD CELL COUNT INCREASED [None]
